FAERS Safety Report 18685848 (Version 3)
Quarter: 2022Q3

REPORT INFORMATION
  Report Type: Spontaneous
  Country: GB (occurrence: GB)
  Receive Date: 20201231
  Receipt Date: 20220820
  Transmission Date: 20221027
  Serious: Yes (Other)
  Sender: FDA-Public Use
  Company Number: GB-MHRA-EYC 00234945

PATIENT
  Age: 33 Year
  Sex: Female
  Weight: 77.11 kg

DRUGS (5)
  1. NORTRIPTYLINE [Suspect]
     Active Substance: NORTRIPTYLINE
     Indication: Migraine
     Dosage: 18 MILLIGRAM
     Route: 048
     Dates: start: 20201010, end: 20201207
  2. PAROXETINE [Suspect]
     Active Substance: PAROXETINE
     Indication: Product used for unknown indication
     Dosage: 60 MILLIGRAM
     Route: 065
  3. SUMATRIPTAN [Suspect]
     Active Substance: SUMATRIPTAN
     Indication: Product used for unknown indication
     Dosage: 50 MILLIGRAM
     Route: 065
  4. SUMATRIPTAN [Suspect]
     Active Substance: SUMATRIPTAN
     Dosage: 50MILLIGRAM
     Route: 065
  5. SUMATRIPTAN [Suspect]
     Active Substance: SUMATRIPTAN
     Dosage: 50MILLIGRAM
     Route: 065

REACTIONS (4)
  - Loss of consciousness [Recovering/Resolving]
  - Syncope [Recovering/Resolving]
  - Labelled drug-drug interaction issue [Unknown]
  - Medication error [Unknown]

NARRATIVE: CASE EVENT DATE: 20201208
